FAERS Safety Report 5953258-1 (Version None)
Quarter: 2008Q4

REPORT INFORMATION
  Report Type: 
  Country: None (occurrence: None)
  Receive Date: 20081114
  Receipt Date: 20081103
  Transmission Date: 20090506
  Serious: Yes (Hospitalization, Disabling, Other)
  Sender: FDA-Public Use
  Company Number: US-ROCHE-412370

PATIENT
  Sex: Female
  Weight: 68 kg

DRUGS (4)
  1. ACCUTANE [Suspect]
     Indication: ACNE
     Route: 048
     Dates: start: 19990701, end: 19990901
  2. IBUPROFEN TABLETS [Concomitant]
  3. PREDNISONE TAB [Concomitant]
     Dosage: DOSAGE REGIMEN REPORTED AS DAILY.
     Route: 048
  4. COUMADIN [Concomitant]
     Indication: PULMONARY EMBOLISM
     Dosage: DOSAGE REGIMEN REPORTED AS DAILY.
     Route: 048

REACTIONS (23)
  - ABDOMINAL COMPARTMENT SYNDROME [None]
  - ABDOMINAL SEPSIS [None]
  - ANAL FISSURE [None]
  - COLITIS [None]
  - COLITIS ULCERATIVE [None]
  - GASTROINTESTINAL DISORDER [None]
  - HAEMORRHAGIC ANAEMIA [None]
  - HAEMORRHOIDS [None]
  - INFLAMMATORY BOWEL DISEASE [None]
  - INTERSTITIAL LUNG DISEASE [None]
  - INTESTINAL HAEMORRHAGE [None]
  - IRON DEFICIENCY ANAEMIA [None]
  - IRRITABLE BOWEL SYNDROME [None]
  - LUNG NEOPLASM [None]
  - MALNUTRITION [None]
  - MICROCYTIC ANAEMIA [None]
  - MULTI-ORGAN DISORDER [None]
  - PAIN [None]
  - PERITONITIS [None]
  - PNEUMONITIS [None]
  - PULMONARY EMBOLISM [None]
  - SMALL INTESTINAL OBSTRUCTION [None]
  - THROMBOCYTHAEMIA [None]
